FAERS Safety Report 9723967 (Version 1)
Quarter: 2013Q4

REPORT INFORMATION
  Report Type: Spontaneous
  Country: FR (occurrence: FR)
  Receive Date: 20131202
  Receipt Date: 20131202
  Transmission Date: 20140711
  Serious: Yes (Death)
  Sender: FDA-Public Use
  Company Number: FR-PFIZER INC-2013341469

PATIENT
  Age: 30 Year
  Sex: Male

DRUGS (1)
  1. XANAX [Suspect]
     Indication: DEPRESSION
     Dosage: 0.25 MG, ONCE A DAY IN THE EVENING

REACTIONS (1)
  - Completed suicide [Fatal]
